FAERS Safety Report 6655561-9 (Version None)
Quarter: 2010Q1

REPORT INFORMATION
  Report Type: 
  Country: None (occurrence: None)
  Receive Date: 20100326
  Receipt Date: 20100326
  Transmission Date: 20100710
  Serious: Yes (Hospitalization)
  Sender: FDA-Public Use
  Company Number: None

PATIENT
  Sex: Female
  Weight: 59.21 kg

DRUGS (4)
  1. CISPLATIN [Suspect]
     Dosage: 119 MG
     Dates: end: 20100310
  2. TAXOTERE [Suspect]
     Dosage: 119 MG
     Dates: end: 20100310
  3. BENTYL [Concomitant]
  4. LOMOTIL [Concomitant]

REACTIONS (4)
  - ABDOMINAL PAIN [None]
  - DIARRHOEA [None]
  - NAUSEA [None]
  - NEUTROPENIA [None]
